FAERS Safety Report 8479336-3 (Version None)
Quarter: 2012Q2

REPORT INFORMATION
  Report Type: 
  Country: None (occurrence: None)
  Receive Date: 20120402
  Receipt Date: 20110330
  Transmission Date: 20120825
  Serious: No
  Sender: FDA-Public Use
  Company Number: A-US2011-46966

PATIENT
  Age: 63 Year
  Sex: Male

DRUGS (3)
  1. TRACLEER [Suspect]
     Indication: PULMONARY ARTERIAL HYPERTENSION
     Dosage: 125 MG, BID, ORAL ; 62.5 MG, BID, ORAL ; 62.5 MG, BID, ORAL
     Route: 048
     Dates: start: 20101201, end: 20110101
  2. TRACLEER [Suspect]
     Indication: PULMONARY ARTERIAL HYPERTENSION
     Dosage: 125 MG, BID, ORAL ; 62.5 MG, BID, ORAL ; 62.5 MG, BID, ORAL
     Route: 048
     Dates: start: 20110101
  3. TRACLEER [Suspect]
     Indication: PULMONARY ARTERIAL HYPERTENSION
     Dosage: 125 MG, BID, ORAL ; 62.5 MG, BID, ORAL ; 62.5 MG, BID, ORAL
     Route: 048
     Dates: start: 20101102, end: 20101201

REACTIONS (5)
  - ALANINE AMINOTRANSFERASE INCREASED [None]
  - LIVER FUNCTION TEST ABNORMAL [None]
  - BLOOD BILIRUBIN INCREASED [None]
  - BLOOD ALKALINE PHOSPHATASE INCREASED [None]
  - ASPARTATE AMINOTRANSFERASE INCREASED [None]
